FAERS Safety Report 8799035 (Version 2)
Quarter: 2019Q3

REPORT INFORMATION
  Report Type: Spontaneous
  Country: DE (occurrence: DE)
  Receive Date: 20120920
  Receipt Date: 20190701
  Transmission Date: 20191005
  Serious: Yes (Congenital Anomaly)
  Sender: FDA-Public Use
  Company Number: GXKR2012DE002978

PATIENT
  Sex: Male
  Weight: 2.89 kg

DRUGS (3)
  1. ERYTHROMYCIN. [Concomitant]
     Active Substance: ERYTHROMYCIN
     Indication: FOETAL EXPOSURE DURING PREGNANCY
     Dosage: MATERNAL DOSE: UNK
     Route: 064
  2. FOLIO FORTE [Concomitant]
     Active Substance: FOLIC ACID\VITAMINS
     Indication: FOETAL EXPOSURE DURING PREGNANCY
     Dosage: MATERNAL DOSE: UNK
     Route: 064
  3. LEVETIRACETAM. [Suspect]
     Active Substance: LEVETIRACETAM
     Indication: FOETAL EXPOSURE DURING PREGNANCY
     Dosage: MATERNAL DOSE: 2000 MG, QD
     Route: 064

REACTIONS (4)
  - Scoliosis [Not Recovered/Not Resolved]
  - Plagiocephaly [Not Recovered/Not Resolved]
  - Maternal exposure during pregnancy [Unknown]
  - Hemivertebra [Not Recovered/Not Resolved]

NARRATIVE: CASE EVENT DATE: 20110518
